FAERS Safety Report 7782767-8 (Version None)
Quarter: 2011Q3

REPORT INFORMATION
  Report Type: 
  Country: None (occurrence: None)
  Receive Date: 20110928
  Receipt Date: 20110916
  Transmission Date: 20111222
  Serious: Yes (Hospitalization)
  Sender: FDA-Public Use
  Company Number: AU-BAYER-2011-086678

PATIENT
  Age: 64 Year
  Sex: Female
  Weight: 73.9 kg

DRUGS (61)
  1. BLINDED SORAFENIB (RAF KINASE INHIBITOR) [Suspect]
     Indication: HEPATIC NEOPLASM MALIGNANT
     Dosage: 50 MG, QD
     Route: 048
     Dates: start: 20110909, end: 20110916
  2. 2-PROPANOL [Concomitant]
     Dosage: 80 MG, UNK
     Dates: start: 20100325
  3. ALENDRATE [Concomitant]
     Indication: OSTEOPOROSIS
     Dosage: 10 MG, UNK
     Dates: start: 20080101
  4. LACTULOSE [Concomitant]
     Indication: HEPATIC ENCEPHALOPATHY
     Dosage: 80 ML, UNK
     Dates: start: 20100318, end: 20100319
  5. LACTULOSE [Concomitant]
     Dosage: 60 ML, UNK
     Dates: start: 20100321, end: 20100806
  6. HEPARIN [Concomitant]
     Dosage: 10000 U, UNK
     Dates: start: 20101215, end: 20101221
  7. FLAGYL [Concomitant]
     Indication: CLOSTRIDIUM DIFFICILE COLITIS
     Dosage: 1200 MG, UNK
     Dates: start: 20100416, end: 20100423
  8. PROCHLORPERAZINE [Concomitant]
     Indication: NAUSEA
     Dosage: 15 MG, UNK
     Dates: start: 20100507, end: 20100702
  9. ULTRAVIST 300 [Concomitant]
     Indication: SCAN WITH CONTRAST
     Dosage: 100 ML, UNK
     Dates: start: 20100310
  10. MF GENTAMYCIN [Concomitant]
     Indication: UROSEPSIS
     Dosage: 320 MG, UNK
     Dates: start: 20101214, end: 20101214
  11. POTASSIUM PERMANGANATE [Concomitant]
     Indication: RASH
     Dosage: PINCH DISSOLVED IN WATER
     Dates: start: 20110415, end: 20110428
  12. MODURETIC 5-50 [Concomitant]
     Indication: HYPERTENSION
     Dosage: 55 MG, UNK
     Dates: start: 20060101, end: 20100319
  13. THIAMINE HCL [Concomitant]
     Indication: VITAMIN SUPPLEMENTATION
     Dosage: 100 MG, UNK
     Dates: start: 20080101
  14. OXYCODONE HCL [Concomitant]
     Indication: BACK PAIN
     Dosage: 10 MG, UNK
     Dates: start: 20100318, end: 20100331
  15. HEPARIN [Concomitant]
     Indication: THROMBOSIS PROPHYLAXIS
     Dosage: 10000 U, UNK
     Dates: start: 20100318, end: 20100401
  16. MIXTARD HUMAN 70/30 [Concomitant]
     Indication: TYPE 2 DIABETES MELLITUS
     Dosage: 96 U, UNK
     Dates: start: 20100331
  17. IMODIUM [Concomitant]
     Indication: DIARRHOEA
     Dosage: 12 MG, UNK
     Dates: start: 20100416
  18. CEPHALEXIN [Concomitant]
     Indication: URINARY TRACT INFECTION
     Dosage: 500 MG, UNK
     Dates: start: 20100930, end: 20101004
  19. METOCLOPRAMIDE [Concomitant]
     Indication: NAUSEA
     Dosage: 10 MG, UNK
     Dates: start: 20101105
  20. ROXIMYCIN [Concomitant]
     Indication: UROSEPSIS
     Dosage: 300 MG, UNK
     Dates: start: 20101216, end: 20101221
  21. LACTULOSE [Concomitant]
     Dosage: 30 ML, UNK
     Dates: start: 20100320, end: 20100320
  22. CEPHALEXIN [Concomitant]
     Dosage: 2 G, UNK
     Dates: start: 20101127
  23. AMPICILLIN SODIUM [Concomitant]
     Indication: UROSEPSIS
     Dosage: 2 G, UNK
     Dates: start: 20101214, end: 20101214
  24. MICONAZOLE [Concomitant]
     Indication: DERMATITIS
     Dosage: 2 G, UNK
     Dates: start: 20110325
  25. KENACOMB [Concomitant]
     Indication: PARONYCHIA
     Dosage: 5 CM
     Dates: start: 20110415
  26. ACETOPHEN [PARACETAMOL] [Concomitant]
     Indication: DERMATITIS
     Dosage: 4 G, UNK
     Dates: start: 20110307, end: 20110310
  27. AUGMENTIN '125' [Concomitant]
     Indication: RESPIRATORY TRACT INFECTION
     Dosage: 2 TABS
     Dates: start: 20100326, end: 20100401
  28. TEMAZEPAM [Concomitant]
     Indication: INSOMNIA
     Dosage: 10 MG, PRN
     Dates: start: 20100321
  29. METHYLPREDNISOLONE ACEPONATE [Concomitant]
     Indication: RASH
     Dosage: 5 CM
     Dates: start: 20110415, end: 20110428
  30. MIXTARD [INSULIN HUMAN INJECTION, ISOPHANE] [Concomitant]
     Indication: TYPE 2 DIABETES MELLITUS
     Dosage: 60 U, UNK
     Dates: start: 20090101, end: 20100330
  31. RAMIPRIL [Concomitant]
     Indication: HYPERTENSION
     Dosage: 10 MG, UNK
     Dates: start: 20060101, end: 20100722
  32. OXAZEPAM [Concomitant]
     Indication: INSOMNIA
     Dosage: 7.5 MG, UNK
     Dates: start: 20100319, end: 20100320
  33. ALBUTEROL [Concomitant]
     Indication: CHRONIC OBSTRUCTIVE PULMONARY DISEASE
     Dosage: 20 MG, UNK
     Dates: start: 20100322
  34. VYTORIN [Concomitant]
     Indication: HYPERLIPIDAEMIA
     Dosage: 50 MG, UNK
     Dates: start: 20070101, end: 20100331
  35. FLUTICASONE PROPIONATE [Concomitant]
     Indication: NASAL CONGESTION
     Dosage: 2 PUFFS OF 125 MG
     Dates: start: 20060101, end: 20100323
  36. ACETOPHEN [PARACETAMOL] [Concomitant]
     Indication: BACK PAIN
     Dosage: 2 G, UNK
     Dates: start: 20100322, end: 20100716
  37. NICOTINE [Concomitant]
     Indication: SMOKING CESSATION THERAPY
     Dosage: 21 MG, UNK
     Dates: start: 20100318
  38. BISUO [PREDNISOLONE] [Concomitant]
     Indication: CHRONIC OBSTRUCTIVE PULMONARY DISEASE
     Dosage: 25 MG, UNK
     Dates: start: 20100323, end: 20100331
  39. ZOLPIDEM [Concomitant]
     Indication: INSOMNIA
     Dosage: 5 MG, PRN
     Dates: start: 20080101
  40. MAXOLON [Concomitant]
     Indication: NAUSEA
     Dosage: 30 MG, UNK
     Dates: start: 20100416, end: 20100507
  41. IPRATROPIUM BROMIDE [Concomitant]
     Indication: WHEEZING
     Dosage: 2 MG, UNK
     Dates: start: 20100323, end: 20100325
  42. MOTILIUM [Concomitant]
     Indication: NAUSEA
     Dosage: 30 MG, UNK
     Dates: start: 20100507
  43. OMNIPAQUE 140 [Concomitant]
     Indication: SCAN WITH CONTRAST
     Dosage: 20 ML, INTERMITTENT USE
     Dates: start: 20100310
  44. HIPREX [Concomitant]
     Indication: DYSURIA
     Dosage: 2 G, UNK
     Dates: start: 20101213, end: 20101215
  45. SORAFENIB (RAF KINASE INHIBITOR) [Suspect]
     Indication: HEPATIC NEOPLASM MALIGNANT
     Dosage: 400 MG, QOD
     Route: 048
     Dates: start: 20110909, end: 20110916
  46. 2-PROPANOL [Concomitant]
     Indication: PORTAL HYPERTENSION
     Dosage: 120 MG, UNK
     Dates: start: 19990101, end: 20100324
  47. SERETIDE MDI [Concomitant]
     Indication: CHRONIC OBSTRUCTIVE PULMONARY DISEASE
     Dosage: 125/25 MCG
     Dates: start: 20100325
  48. FLUTICASONE PROPIONATE [Concomitant]
     Indication: RESPIRATORY TRACT INFECTION
     Dosage: 50/25 MCG
     Dates: start: 20100326, end: 20100326
  49. ZOFRAN [Concomitant]
     Indication: NAUSEA
     Dosage: 4 MG, UNK
     Dates: start: 20100409
  50. MIRTAZAPINE [Concomitant]
     Indication: ANXIETY
     Dosage: 15 MG, UNK
     Dates: start: 20100611, end: 20100702
  51. MIRTAZAPINE [Concomitant]
     Dosage: 30 MG, UNK
     Dates: start: 20100703, end: 20100710
  52. SIGMACORT [Concomitant]
     Indication: ANAL INJURY
     Dosage: 20 MM
     Dates: start: 20100414, end: 20100423
  53. CEPHALEXIN [Concomitant]
     Dosage: 1 G, UNK
     Dates: start: 20110325
  54. ZINC OXIDE [Concomitant]
     Indication: ANAL INJURY
     Dosage: 1 CM
     Dates: start: 20100414, end: 20100423
  55. ACETAMINOPHEN W/ CODEINE [Concomitant]
     Indication: DERMATITIS
     Dosage: 3 TABS
     Dates: start: 20110311, end: 20110428
  56. PARAFFIN SOFT [Concomitant]
     Indication: RASH
     Dosage: 5 G, UNK
     Dates: start: 20110415, end: 20110428
  57. VALIUM [Concomitant]
     Indication: INSOMNIA
     Dosage: 5 MG, UNK
     Dates: start: 20080101
  58. VITAMINORUM [Concomitant]
     Indication: MEDICAL DIET
     Dosage: 1 TAB
     Dates: start: 20100319
  59. CEPHALEXIN [Concomitant]
     Indication: PARONYCHIA
     Dosage: 1 G, UNK
     Dates: start: 20101115, end: 20101126
  60. ZOSYN [Concomitant]
     Indication: UROSEPSIS
     Dosage: 18 G, UNK
     Dates: start: 20101215, end: 20101217
  61. DERMATOLOGICALS [Concomitant]
     Indication: PARONYCHIA
     Dosage: 50 G, UNK
     Dates: start: 20110415

REACTIONS (1)
  - CONFUSIONAL STATE [None]
